FAERS Safety Report 7892407-5 (Version None)
Quarter: 2011Q4

REPORT INFORMATION
  Report Type: 
  Country: None (occurrence: None)
  Receive Date: 20111104
  Receipt Date: 20111025
  Transmission Date: 20120403
  Serious: Yes (Other)
  Sender: FDA-Public Use
  Company Number: IT-JNJFOC-20111011994

PATIENT
  Age: 58 Year
  Sex: Male

DRUGS (4)
  1. INFLIXIMAB, RECOMBINANT [Suspect]
     Route: 042
     Dates: start: 20040101
  2. INFLIXIMAB, RECOMBINANT [Suspect]
     Indication: CROHN'S DISEASE
     Route: 042
     Dates: start: 20030601
  3. ADALIMUMAB [Concomitant]
     Indication: ANORECTAL DISORDER
     Dates: start: 20090901
  4. CORTICOSTEROIDS [Concomitant]
     Indication: CROHN'S DISEASE
     Dates: start: 20020101

REACTIONS (2)
  - VASCULAR NEOPLASM [None]
  - INFUSION RELATED REACTION [None]
